FAERS Safety Report 17990095 (Version 2)
Quarter: 2021Q1

REPORT INFORMATION
  Report Type: Spontaneous
  Country: US (occurrence: US)
  Receive Date: 20200707
  Receipt Date: 20210316
  Transmission Date: 20210419
  Serious: Yes (Other)
  Sender: FDA-Public Use
  Company Number: US-GLAXOSMITHKLINE-US2020121038

PATIENT
  Sex: Male

DRUGS (11)
  1. RANITIDINE. [Suspect]
     Active Substance: RANITIDINE
  2. ZANTAC [Suspect]
     Active Substance: RANITIDINE HYDROCHLORIDE
     Indication: CHEST PAIN
     Dosage: 300 MG, QD
     Route: 065
     Dates: start: 200709, end: 201911
  3. RANITIDINE. [Suspect]
     Active Substance: RANITIDINE
     Indication: CHEST PAIN
     Dosage: 300 MG, QD
     Route: 065
     Dates: start: 200709, end: 201911
  4. ZANTAC [Suspect]
     Active Substance: RANITIDINE HYDROCHLORIDE
     Indication: CHEST PAIN
     Dosage: 300 MG, QD
     Route: 065
     Dates: start: 200709, end: 201911
  5. RANITIDINE. [Suspect]
     Active Substance: RANITIDINE
     Indication: CHEST PAIN
     Dosage: 300 MG, QD
     Route: 065
     Dates: start: 200709, end: 201911
  6. ZANTAC [Suspect]
     Active Substance: RANITIDINE HYDROCHLORIDE
  7. ZANTAC [Suspect]
     Active Substance: RANITIDINE HYDROCHLORIDE
     Indication: CHEST PAIN
     Dosage: 300 MG, QD
     Route: 065
     Dates: start: 200709, end: 201911
  8. RANITIDINE HCI [Suspect]
     Active Substance: RANITIDINE HYDROCHLORIDE
  9. ZANTAC [Suspect]
     Active Substance: RANITIDINE HYDROCHLORIDE
  10. RANITIDINE CAPSULE [Suspect]
     Active Substance: RANITIDINE
     Indication: CHEST PAIN
     Dosage: 300 MG, QD
     Route: 065
     Dates: start: 200709, end: 201911
  11. RANITIDINE. [Suspect]
     Active Substance: RANITIDINE
     Indication: CHEST PAIN
     Dosage: 300 MG, QD
     Route: 065
     Dates: start: 200709, end: 201911

REACTIONS (1)
  - Prostate cancer [Unknown]
